FAERS Safety Report 5256788-3 (Version None)
Quarter: 2007Q1

REPORT INFORMATION
  Report Type: 
  Country: None (occurrence: None)
  Receive Date: 20070306
  Receipt Date: 20070228
  Transmission Date: 20070707
  Serious: No
  Sender: FDA-Public Use
  Company Number: 2006UW02384

PATIENT
  Age: 17882 Day
  Sex: Male
  Weight: 131.8 kg

DRUGS (4)
  1. SEROQUEL [Suspect]
     Indication: ANXIETY
     Dosage: 200 MG TO 300 MG
     Route: 048
     Dates: start: 20041011, end: 20051208
  2. SEROQUEL [Suspect]
     Indication: DEPRESSION
     Dosage: 200 MG TO 300 MG
     Route: 048
     Dates: start: 20041011, end: 20051208
  3. ZYPREXA [Suspect]
     Indication: DEPRESSION
     Dosage: 5 MG TO 10 MG
     Dates: start: 20021029, end: 20030601
  4. ZYPREXA [Suspect]
     Indication: ANXIETY
     Dosage: 5 MG TO 10 MG
     Dates: start: 20021029, end: 20030601

REACTIONS (1)
  - DIABETES MELLITUS [None]
